FAERS Safety Report 5482069-9 (Version None)
Quarter: 2007Q4

REPORT INFORMATION
  Report Type: 
  Country: None (occurrence: None)
  Receive Date: 20071005
  Receipt Date: 20070924
  Transmission Date: 20080405
  Serious: Yes (Death)
  Sender: FDA-Public Use
  Company Number: B0489471A

PATIENT
  Age: 13 Day

DRUGS (1)
  1. FLUTICASONE PROPIONATE+SALMETEROL XINAFOATE HFA-CFC FREE INH (FLUTICAS [Suspect]
     Dosage: TRANSPLACENTARY
     Route: 064

REACTIONS (4)
  - CAESAREAN SECTION [None]
  - DRUG EXPOSURE DURING PREGNANCY [None]
  - HYPERGLYCAEMIA [None]
  - NEONATAL DISORDER [None]
